FAERS Safety Report 20508285 (Version 3)
Quarter: 2022Q2

REPORT INFORMATION
  Report Type: Spontaneous
  Country: GB (occurrence: GB)
  Receive Date: 20220223
  Receipt Date: 20220610
  Transmission Date: 20220721
  Serious: Yes (Other)
  Sender: FDA-Public Use
  Company Number: None

PATIENT
  Sex: Male

DRUGS (34)
  1. AZATHIOPRINE [Suspect]
     Active Substance: AZATHIOPRINE
     Indication: Colitis
     Dosage: 75 MG, QD (MORNING, LUNCH AND TEA TIME (WITH OR JUST AFTER FOOD/MEAL))
     Route: 048
  2. AZATHIOPRINE [Suspect]
     Active Substance: AZATHIOPRINE
     Dosage: 25 MG, QD (MORNING, LUNCH AND TEA TIME (WITH OR JUST AFTER FOOD/MEAL))
     Route: 048
  3. AZATHIOPRINE [Suspect]
     Active Substance: AZATHIOPRINE
     Dosage: 25 MG, Q8H (MORNING, LUNCH AND TEA TIME
     Route: 048
  4. AZATHIOPRINE [Suspect]
     Active Substance: AZATHIOPRINE
     Dosage: 75 MG, Q8H (MORNING, LUNCH AND TEA TIME (WITH OR JUST AFTER FOOD/MEAL)
     Route: 048
  5. AZATHIOPRINE [Suspect]
     Active Substance: AZATHIOPRINE
     Dosage: 25 MG, TID
     Route: 048
  6. MIRTAZAPINE [Suspect]
     Active Substance: MIRTAZAPINE
     Indication: Product used for unknown indication
     Dosage: 30 MG, QN (NIGHT)
     Route: 048
  7. MIRTAZAPINE [Suspect]
     Active Substance: MIRTAZAPINE
     Dosage: 30 MG, QD (NIGHT)
     Route: 048
  8. MIRTAZAPINE [Suspect]
     Active Substance: MIRTAZAPINE
     Dosage: 30 MG, HS
     Route: 048
  9. OLANZAPINE [Suspect]
     Active Substance: OLANZAPINE
     Indication: Product used for unknown indication
     Dosage: 5 MG, QD (ONCE A DAY)
     Route: 065
  10. OLANZAPINE [Suspect]
     Active Substance: OLANZAPINE
     Dosage: 10 MG, QD
     Route: 065
  11. DIHYDROCODEINE [Suspect]
     Active Substance: DIHYDROCODEINE
     Indication: Pain
     Dosage: 60 MG, QID (FOUR TIMES DAILY.WITH OR JUST AFTER FOOD/MEAL)
     Route: 048
  12. DIHYDROCODEINE [Suspect]
     Active Substance: DIHYDROCODEINE
     Dosage: 2 DOSAGE FORM, Q6H (TWO TO BE TAKEN FOUR TIMES A DAY IF REQUIRED)
     Route: 048
  13. DIHYDROCODEINE [Suspect]
     Active Substance: DIHYDROCODEINE
     Dosage: 60 MG, QID (WITH OR JUST AFTER FOOD/MEAL)
     Route: 065
  14. DIHYDROCODEINE [Suspect]
     Active Substance: DIHYDROCODEINE
     Dosage: 240 MG, QID (WITH OR JUST AFTER FOOD/MEAL)
     Route: 048
  15. DIHYDROCODEINE [Suspect]
     Active Substance: DIHYDROCODEINE
     Dosage: 8 DOSAGE FORM, QD
     Route: 048
  16. DIHYDROCODEINE [Suspect]
     Active Substance: DIHYDROCODEINE
     Dosage: 60 MG, Q6H (TWO TO BE TAKEN FOUR TIMES A DAY IF REQUIRED)
     Route: 048
  17. DIHYDROCODEINE [Suspect]
     Active Substance: DIHYDROCODEINE
     Dosage: 60 MG, PRN (AS NECESSARY)
     Route: 065
  18. DIHYDROCODEINE [Suspect]
     Active Substance: DIHYDROCODEINE
     Dosage: 240 MG, Q6H (FOUR TIMES DAILY. WITH OR JUST AFTER FOOD/MEAL)
     Route: 048
  19. DIHYDROCODEINE [Suspect]
     Active Substance: DIHYDROCODEINE
     Dosage: 2 DF, Q6H, AS NECESSARY,TWO TO BE TAKEN FOUR TIMES A DAY IF REQUIRED. RECEIVED 60 MG DOSE
     Route: 048
  20. DIHYDROCODEINE [Suspect]
     Active Substance: DIHYDROCODEINE
     Dosage: 60 MG, QD
     Route: 048
  21. DIHYDROCODEINE [Suspect]
     Active Substance: DIHYDROCODEINE
     Dosage: 8 DOSAGE FORM, Q4H (TWO TO BE TAKEN FOUR TIMES A DAY IF REQUIRED, AS NECESSARY)
     Route: 048
  22. ESCITALOPRAM OXALATE [Suspect]
     Active Substance: ESCITALOPRAM OXALATE
     Indication: Product used for unknown indication
     Dosage: 10 MG, QD (MORNING)
     Route: 048
  23. PROMETHAZINE HYDROCHLORIDE [Suspect]
     Active Substance: PROMETHAZINE HYDROCHLORIDE
     Indication: Product used for unknown indication
     Dosage: 25 MG, QD (NIGHT)
     Route: 048
  24. PROMETHAZINE HYDROCHLORIDE [Suspect]
     Active Substance: PROMETHAZINE HYDROCHLORIDE
     Dosage: 25 MG, HS
     Route: 048
  25. FERROUS FUMARATE [Suspect]
     Active Substance: FERROUS FUMARATE
     Indication: Anaemia
     Dosage: 420 MG, QD (MORNING AND NIGHT)
     Route: 048
  26. FERROUS FUMARATE [Suspect]
     Active Substance: FERROUS FUMARATE
     Dosage: 210 MG, QD (MORNING AND NIGHT)
     Route: 065
  27. FERROUS FUMARATE [Suspect]
     Active Substance: FERROUS FUMARATE
     Dosage: 840 MG, QD (MORNING AND NIGHT)
     Route: 048
  28. FERROUS FUMARATE [Suspect]
     Active Substance: FERROUS FUMARATE
     Dosage: 420 MG, QD, MORNING AND NIGHT
     Route: 048
  29. FERROUS FUMARATE [Suspect]
     Active Substance: FERROUS FUMARATE
     Dosage: 210 MG;
     Route: 048
  30. FERROUS FUMARATE [Suspect]
     Active Substance: FERROUS FUMARATE
     Dosage: 210 MG, BID
     Route: 048
  31. FERROUS FUMARATE [Suspect]
     Active Substance: FERROUS FUMARATE
     Dosage: 840 MG, QD
     Route: 048
  32. FERROUS FUMARATE [Suspect]
     Active Substance: FERROUS FUMARATE
     Dosage: 420 MG, BID (MORNING AND NIGHT)
     Route: 048
  33. FERROUS FUMARATE [Suspect]
     Active Substance: FERROUS FUMARATE
     Dosage: 210 MG, BID (MORNING AND NIGHT)
     Route: 048
  34. FOLIC ACID [Suspect]
     Active Substance: FOLIC ACID
     Indication: Folate deficiency
     Dosage: 5 MG, QD
     Route: 048

REACTIONS (2)
  - Seizure [Unknown]
  - Autoscopy [Unknown]
